FAERS Safety Report 7443053-9 (Version None)
Quarter: 2011Q2

REPORT INFORMATION
  Report Type: 
  Country: None (occurrence: None)
  Receive Date: 20110428
  Receipt Date: 20100511
  Transmission Date: 20111010
  Serious: No
  Sender: FDA-Public Use
  Company Number: US-MYLANLABS-2010S1008427

PATIENT

DRUGS (1)
  1. DUONEB [Suspect]
     Route: 055

REACTIONS (2)
  - THROAT IRRITATION [None]
  - OESOPHAGEAL PAIN [None]
